FAERS Safety Report 5450016-1 (Version None)
Quarter: 2007Q3

REPORT INFORMATION
  Report Type: 
  Country: None (occurrence: None)
  Receive Date: 20070912
  Receipt Date: 20070905
  Transmission Date: 20080115
  Serious: Yes (Other)
  Sender: FDA-Public Use
  Company Number: US-JNJFOC-20070901425

PATIENT
  Sex: Female
  Weight: 58.06 kg

DRUGS (7)
  1. DURAGESIC-100 [Suspect]
     Route: 062
  2. DURAGESIC-100 [Suspect]
     Route: 062
  3. DURAGESIC-100 [Suspect]
     Route: 062
  4. DURAGESIC-100 [Suspect]
     Indication: PAIN
     Route: 062
  5. HYDROCODONE [Concomitant]
     Indication: BREAKTHROUGH PAIN
     Dosage: 10/500MG
     Route: 048
  6. SOMA [Concomitant]
     Route: 048
  7. FENTANYL [Concomitant]
     Indication: BREAKTHROUGH PAIN
     Route: 065

REACTIONS (10)
  - DEVICE LEAKAGE [None]
  - DISORIENTATION [None]
  - DRUG DOSE OMISSION [None]
  - DRUG WITHDRAWAL SYNDROME [None]
  - DYSPNOEA [None]
  - FEELING ABNORMAL [None]
  - HEART RATE ABNORMAL [None]
  - INAPPROPRIATE SCHEDULE OF DRUG ADMINISTRATION [None]
  - MALAISE [None]
  - PAIN [None]
